FAERS Safety Report 13180807 (Version 1)
Quarter: 2017Q1

REPORT INFORMATION
  Report Type: Spontaneous
  Country: US (occurrence: US)
  Receive Date: 20170202
  Receipt Date: 20170202
  Transmission Date: 20170428
  Serious: No
  Sender: FDA-Public Use
  Company Number: US-SMITH AND NEPHEW, INC-2016SMT00202

PATIENT
  Age: 42 Year
  Sex: Male
  Weight: 163.26 kg

DRUGS (15)
  1. REGRANEX [Suspect]
     Active Substance: BECAPLERMIN
     Indication: DIABETIC ULCER
     Dosage: UNK, 1X/DAY
     Route: 061
     Dates: start: 20160220
  2. NYSTATIN. [Concomitant]
     Active Substance: NYSTATIN
     Indication: BALANOPOSTHITIS
     Dosage: UNK, UP TO 2X/DAY
     Dates: start: 2014
  3. FUROSEMIDE. [Concomitant]
     Active Substance: FUROSEMIDE
     Dosage: 40 MG, 1X/DAY
  4. GLIMEPIRIDE. [Concomitant]
     Active Substance: GLIMEPIRIDE
     Dosage: 4 MG, 2X/DAY
     Dates: start: 2012
  5. LORATADINE. [Concomitant]
     Active Substance: LORATADINE
     Indication: MULTIPLE ALLERGIES
     Dosage: 10 UNK, 1X/DAY
     Dates: start: 2013
  6. BABY ASPIRIN [Concomitant]
     Active Substance: ASPIRIN
     Dosage: 81 MG, 1X/DAY
     Dates: start: 2015
  7. FLUTICASONE PROPIONATE. [Concomitant]
     Active Substance: FLUTICASONE PROPIONATE
     Dosage: UNK UNK, 2X/DAY
  8. MAGNESIUM [Concomitant]
     Active Substance: MAGNESIUM
     Dosage: 400 MG, 1X/DAY
     Dates: start: 2014
  9. ATENOLOL. [Concomitant]
     Active Substance: ATENOLOL
     Dosage: 25 MG, 1X/DAY
  10. LACTULOSE. [Concomitant]
     Active Substance: LACTULOSE
     Dosage: 30 MG, 3X/DAY
  11. LEVEMIR [Concomitant]
     Active Substance: INSULIN DETEMIR
     Dosage: 75 U, 1X/DAY
     Dates: start: 201601
  12. LEVEMIR [Concomitant]
     Active Substance: INSULIN DETEMIR
     Dosage: UNK UNK, 1X/DAY
     Dates: start: 201405, end: 201601
  13. NOVOLOG [Concomitant]
     Active Substance: INSULIN ASPART
     Dosage: 24 U, 3X/DAY
     Dates: start: 201405
  14. FERROUS SULFATE. [Concomitant]
     Active Substance: FERROUS SULFATE
     Dosage: 325 MG, 1X/DAY
     Dates: start: 2014
  15. PROTONIX [Concomitant]
     Active Substance: PANTOPRAZOLE SODIUM
     Dosage: 40 MG, 2X/DAY
     Dates: start: 2012

REACTIONS (3)
  - Application site pain [Recovering/Resolving]
  - Vein disorder [Unknown]
  - Rash erythematous [Recovering/Resolving]

NARRATIVE: CASE EVENT DATE: 201602
